FAERS Safety Report 9262370 (Version 1)
Quarter: 2013Q2

REPORT INFORMATION
  Report Type: Spontaneous
  Country: US (occurrence: US)
  Receive Date: 20130430
  Receipt Date: 20130430
  Transmission Date: 20140414
  Serious: No
  Sender: FDA-Public Use
  Company Number: US-009507513-1304USA016628

PATIENT
  Age: 63 Year
  Sex: Male
  Weight: 77.55 kg

DRUGS (9)
  1. VICTRELIS [Suspect]
     Dosage: 4 CAPSULES BY MONTH THREE TIMES A DAY WITH MEALS
     Route: 048
  2. REBETOL [Suspect]
     Route: 048
  3. PEGASYS [Suspect]
  4. AMBIEN [Concomitant]
  5. PRINIVIL [Concomitant]
  6. OXYCONTIN [Concomitant]
  7. VALIUM [Concomitant]
  8. VITAMIN D (UNSPECIFIED) [Concomitant]
  9. ASPIRIN [Concomitant]

REACTIONS (1)
  - Panic attack [Unknown]
